FAERS Safety Report 8561343-3 (Version None)
Quarter: 2012Q3

REPORT INFORMATION
  Report Type: 
  Country: None (occurrence: None)
  Receive Date: 20120802
  Receipt Date: 20120727
  Transmission Date: 20120928
  Serious: Yes (Hospitalization)
  Sender: FDA-Public Use
  Company Number: US-B.I. PHARMACEUTICALS,INC./RIDGEFIELD-2012-BP-17028BP

PATIENT
  Sex: Male
  Weight: 86 kg

DRUGS (20)
  1. SPIRIVA [Suspect]
     Dosage: 18 MCG
     Route: 055
     Dates: start: 20111201
  2. DUONEB [Concomitant]
     Indication: CHRONIC OBSTRUCTIVE PULMONARY DISEASE
     Route: 055
     Dates: start: 20020101
  3. CENTRUM [Concomitant]
     Indication: VITAMIN SUPPLEMENTATION
  4. GABAPENTIN [Concomitant]
     Indication: HYPERTENSION
     Route: 048
     Dates: start: 20070101
  5. LOVASTATIN [Concomitant]
     Indication: BLOOD CHOLESTEROL ABNORMAL
     Dosage: 20 MG
     Route: 048
     Dates: start: 20050101
  6. OMEPRAZOLE [Concomitant]
     Indication: PH URINE INCREASED
     Dosage: 20 MG
     Route: 048
     Dates: start: 20070101
  7. FLOVENT [Concomitant]
     Indication: ASTHMA
     Dosage: 220 MG
     Route: 055
     Dates: start: 19920101
  8. OXYGEN [Concomitant]
     Indication: CHRONIC OBSTRUCTIVE PULMONARY DISEASE
     Route: 045
     Dates: start: 19920101
  9. VENTOLIN [Concomitant]
     Indication: ASTHMA
     Dosage: 90 MCG
     Route: 055
     Dates: start: 19920101
  10. SPIRIVA [Suspect]
     Indication: CHRONIC OBSTRUCTIVE PULMONARY DISEASE
     Dosage: 18 MCG
     Route: 055
     Dates: start: 20070101, end: 20080101
  11. VITAMIN B SPECTRUM [Concomitant]
     Indication: METABOLIC DISORDER
  12. BENAZEPRIL HYDROCHLORIDE [Concomitant]
     Indication: HYPERTENSION
     Dosage: 40 MG
     Route: 048
     Dates: start: 20050101
  13. CENTRUM [Concomitant]
     Indication: MINERAL SUPPLEMENTATION
     Route: 048
     Dates: start: 19600101
  14. VITAMIN B SPECTRUM [Concomitant]
     Indication: ASTHENIA
     Route: 048
     Dates: start: 19600101
  15. VITAMIN D [Concomitant]
     Indication: VITAMIN SUPPLEMENTATION
     Dosage: 1000 MG
     Route: 048
     Dates: start: 20110101
  16. DILTIAZEM [Concomitant]
     Indication: HYPERTENSION
     Dosage: 350 MG
     Route: 048
     Dates: start: 20050101
  17. IPROPRIUM BROMIDE AND ALBUTEROL SULFATE [Concomitant]
     Indication: ASTHMA
     Route: 055
     Dates: start: 20020101
  18. ASCORBIC ACID [Concomitant]
     Indication: IMMUNE SYSTEM DISORDER
     Dosage: 1000 MG
     Route: 048
     Dates: start: 20060101
  19. LOVAZA [Concomitant]
     Indication: SUPPLEMENTATION THERAPY
     Dosage: 1000 MG
     Route: 048
     Dates: start: 19600101
  20. PREDNISOLONE EYE DROPS [Concomitant]
     Indication: HERPES ZOSTER
     Dates: start: 20070101

REACTIONS (2)
  - PRURITUS [None]
  - CYSTITIS [None]
